FAERS Safety Report 18594666 (Version 1)
Quarter: 2020Q4

REPORT INFORMATION
  Report Type: Spontaneous
  Country: US (occurrence: US)
  Receive Date: 20201208
  Receipt Date: 20201208
  Transmission Date: 20210114
  Serious: Yes (Other)
  Sender: FDA-Public Use
  Company Number: None

PATIENT
  Age: 44 Year
  Sex: Male
  Weight: 69.75 kg

DRUGS (5)
  1. DEXAMETHASONE. [Concomitant]
     Active Substance: DEXAMETHASONE
  2. MULTIVITAMINS [Concomitant]
     Active Substance: VITAMINS
  3. BRAFTOVI [Suspect]
     Active Substance: ENCORAFENIB
     Indication: MALIGNANT MELANOMA
     Dosage: ?          OTHER FREQUENCY:6 CAPSULES DAILY;?
     Route: 048
     Dates: start: 20200507, end: 20201208
  4. KEPPRA [Concomitant]
     Active Substance: LEVETIRACETAM
  5. MEKTOVI [Suspect]
     Active Substance: BINIMETINIB
     Indication: MALIGNANT CONNECTIVE TISSUE NEOPLASM
     Route: 048
     Dates: start: 20200507, end: 20201208

REACTIONS (1)
  - Hospice care [None]

NARRATIVE: CASE EVENT DATE: 20201208
